FAERS Safety Report 7584495-0 (Version None)
Quarter: 2011Q2

REPORT INFORMATION
  Report Type: 
  Country: None (occurrence: None)
  Receive Date: 20110630
  Receipt Date: 20110628
  Transmission Date: 20111010
  Serious: Yes (Hospitalization, Other)
  Sender: FDA-Public Use
  Company Number: AU-PFIZER INC-2011143707

PATIENT
  Age: 49 Year
  Sex: Male

DRUGS (3)
  1. VENLAFAXINE HCL [Suspect]
     Dosage: 4.2 G
  2. OLANZAPINE [Suspect]
     Dosage: 2.5 G
  3. VALACICLOVIR [Suspect]
     Dosage: 30 G

REACTIONS (6)
  - RENAL FAILURE ACUTE [None]
  - CRYSTALLURIA [None]
  - OVERDOSE [None]
  - HYPOTENSION [None]
  - TACHYCARDIA [None]
  - LACTIC ACIDOSIS [None]
